FAERS Safety Report 20451616 (Version 1)
Quarter: 2022Q1

REPORT INFORMATION
  Report Type: Spontaneous
  Country: US (occurrence: US)
  Receive Date: 20220209
  Receipt Date: 20220209
  Transmission Date: 20220424
  Serious: No
  Sender: FDA-Public Use
  Company Number: US-NOVARTISTESTPH-NVSC2021US055984

PATIENT
  Sex: Male

DRUGS (1)
  1. PATADAY [Suspect]
     Active Substance: OLOPATADINE HYDROCHLORIDE
     Indication: Eye allergy
     Dosage: 02 %, QD
     Route: 065
     Dates: start: 20210301

REACTIONS (3)
  - Skin disorder [Unknown]
  - Dry skin [Recovering/Resolving]
  - Eyelid margin crusting [Recovering/Resolving]
